FAERS Safety Report 4801434-3 (Version None)
Quarter: 2005Q4

REPORT INFORMATION
  Report Type: 
  Country: None (occurrence: None)
  Receive Date: 20051018
  Receipt Date: 20050913
  Transmission Date: 20060501
  Serious: Yes (Life-Threatening, Hospitalization)
  Sender: FDA-Public Use
  Company Number: NL-BOEHRINGER INGELHEIM PHARMACEUTICALS, INC.-2005-NL-00247NL

PATIENT
  Sex: Female

DRUGS (1)
  1. MOVICOX [Suspect]
     Route: 048
     Dates: start: 20050610, end: 20050618

REACTIONS (3)
  - ANGINA PECTORIS [None]
  - CORONARY ARTERY STENOSIS [None]
  - MYOCARDIAL INFARCTION [None]
